FAERS Safety Report 8774711 (Version 1)
Quarter: 2012Q4

REPORT INFORMATION
  Report Type: 
  Country: US (occurrence: US)
  Receive Date: 20120910
  Receipt Date: 20120910
  Transmission Date: 20130627
  Serious: No
  Sender: FDA-Public Use
  Company Number: US-PFIZER INC-2012221398

PATIENT
  Age: 35 Year
  Sex: Female
  Weight: 56.69 kg

DRUGS (4)
  1. EFFEXOR XR [Suspect]
     Indication: DEPRESSION
     Dosage: 225 mg, 1x/day
     Route: 048
     Dates: start: 201109, end: 201208
  2. EFFEXOR XR [Suspect]
     Indication: HEARING IMPAIRED
     Dosage: 150 mg, 1x/day
     Route: 048
     Dates: start: 201208, end: 201208
  3. EFFEXOR XR [Suspect]
     Dosage: 75 mg, 1x/day
     Route: 048
     Dates: start: 201208, end: 201208
  4. KLONOPIN [Concomitant]
     Dosage: UNK, 3x/day

REACTIONS (1)
  - Paraesthesia [Not Recovered/Not Resolved]
